FAERS Safety Report 11377683 (Version 1)
Quarter: 2015Q3

REPORT INFORMATION
  Report Type: Spontaneous
  Country: US (occurrence: US)
  Receive Date: 20150811
  Receipt Date: 20150811
  Transmission Date: 20151125
  Serious: No
  Sender: FDA-Public Use
  Company Number: US-ELI_LILLY_AND_COMPANY-US200907000206

PATIENT
  Sex: Female

DRUGS (8)
  1. TAZTIA XT [Concomitant]
     Active Substance: DILTIAZEM HYDROCHLORIDE
  2. DIOVAN [Concomitant]
     Active Substance: VALSARTAN
  3. MELOXICAM. [Concomitant]
     Active Substance: MELOXICAM
  4. HUMULIN N [Suspect]
     Active Substance: INSULIN HUMAN
     Indication: DIABETES MELLITUS
     Dosage: 48 U, EACH MORNING
     Dates: start: 1988
  5. VITAMINS [Concomitant]
     Active Substance: VITAMINS
  6. HUMULIN N [Suspect]
     Active Substance: INSULIN HUMAN
     Dosage: 10 U, EACH EVENING
     Dates: start: 1988
  7. GABAPENTIN. [Concomitant]
     Active Substance: GABAPENTIN
  8. CHONDROITIN W/GLUCOSAMINE [Concomitant]

REACTIONS (4)
  - Abasia [Not Recovered/Not Resolved]
  - Arthritis [Not Recovered/Not Resolved]
  - Visual acuity reduced [Not Recovered/Not Resolved]
  - Retinal disorder [Not Recovered/Not Resolved]

NARRATIVE: CASE EVENT DATE: 2006
